FAERS Safety Report 8482824 (Version 9)
Quarter: 2013Q3

REPORT INFORMATION
  Report Type: Spontaneous
  Country: US (occurrence: US)
  Receive Date: 20120329
  Receipt Date: 20130912
  Transmission Date: 20140515
  Serious: Yes (Hospitalization, Disabling, Other)
  Sender: FDA-Public Use
  Company Number: US-009507513-1203USA03372

PATIENT
  Sex: Female
  Weight: 75.3 kg

DRUGS (10)
  1. FOSAMAX [Suspect]
     Indication: OSTEOPOROSIS
     Dosage: 10 MG, QD
     Route: 048
     Dates: start: 19951204, end: 20010426
  2. FOSAMAX [Suspect]
     Indication: OSTEOPOROSIS
     Dosage: 70 MG, QW
     Route: 048
     Dates: start: 20010626, end: 20070718
  3. FOSAMAX [Suspect]
     Indication: OSTEOPOROSIS
     Route: 048
     Dates: start: 200707
  4. FOSAMAX [Suspect]
     Indication: OSTEOPOROSIS
  5. FOSAMAX [Suspect]
     Indication: OSTEOPOROSIS
     Dosage: UNK
     Route: 048
     Dates: start: 20090612
  6. FOSAMAX [Suspect]
     Indication: OSTEOPOROSIS
     Dosage: 70 MG, UNK
     Route: 048
     Dates: start: 20100518, end: 20110205
  7. FOSAMAX [Suspect]
     Indication: OSTEOPOROSIS
     Dosage: 70 MG, UNK
     Route: 048
     Dates: start: 20090713, end: 20100226
  8. FOSAMAX [Suspect]
     Indication: OSTEOPOROSIS
  9. BONIVA [Suspect]
     Indication: OSTEOPOROSIS
     Dosage: 150 MG, UNK
     Route: 048
     Dates: start: 20070816, end: 20071018
  10. BONIVA [Suspect]
     Indication: OSTEOPOROSIS

REACTIONS (83)
  - Femur fracture [Not Recovered/Not Resolved]
  - Open reduction of fracture [Unknown]
  - Bone graft [Unknown]
  - Open reduction of fracture [Not Recovered/Not Resolved]
  - Pancreatitis acute [Unknown]
  - Cholelithiasis [Unknown]
  - Hypokalaemia [Unknown]
  - Fibula fracture [Unknown]
  - Hearing impaired [Not Recovered/Not Resolved]
  - Decreased appetite [Unknown]
  - Deafness [Not Recovered/Not Resolved]
  - Urinary retention [Not Recovered/Not Resolved]
  - Medical device complication [Unknown]
  - Device failure [Unknown]
  - Fall [Unknown]
  - Cholecystectomy [Unknown]
  - White blood cell count increased [Unknown]
  - Hyponatraemia [Unknown]
  - Anaemia postoperative [Unknown]
  - Fracture delayed union [Unknown]
  - Hepatitis [Unknown]
  - Low turnover osteopathy [Not Recovered/Not Resolved]
  - Ankle fracture [Unknown]
  - Pyrexia [Recovered/Resolved]
  - Musculoskeletal pain [Unknown]
  - Uterine disorder [Unknown]
  - Rib fracture [Unknown]
  - Rib fracture [Unknown]
  - Rib fracture [Unknown]
  - Rib fracture [Unknown]
  - Rib fracture [Unknown]
  - Sjogren^s syndrome [Not Recovered/Not Resolved]
  - Fall [Unknown]
  - Pneumonia [Unknown]
  - Vitrectomy [Unknown]
  - Fibrocystic breast disease [Unknown]
  - Rib fracture [Unknown]
  - Spinal compression fracture [Unknown]
  - Anaemia of chronic disease [Not Recovered/Not Resolved]
  - Cerumen impaction [Unknown]
  - Kyphosis [Unknown]
  - Bursitis [Not Recovered/Not Resolved]
  - Pulmonary mass [Not Recovered/Not Resolved]
  - Intervertebral disc degeneration [Unknown]
  - Spinal compression fracture [Unknown]
  - Pulmonary fibrosis [Unknown]
  - Carotid bruit [Unknown]
  - Carotid arteriosclerosis [Unknown]
  - Pubis fracture [Unknown]
  - Pathological fracture [Unknown]
  - Stomach mass [Unknown]
  - Cough [Unknown]
  - Laryngitis [Unknown]
  - Colon adenoma [Unknown]
  - Diverticulum [Unknown]
  - Large intestine polyp [Unknown]
  - Colon adenoma [Unknown]
  - Hypertension [Not Recovered/Not Resolved]
  - Dry mouth [Not Recovered/Not Resolved]
  - Acute sinusitis [Unknown]
  - Gait disturbance [Not Recovered/Not Resolved]
  - Blister [Unknown]
  - Hypothyroidism [Not Recovered/Not Resolved]
  - Dry mouth [Unknown]
  - Infection [Unknown]
  - Onychomycosis [Unknown]
  - Paraesthesia [Not Recovered/Not Resolved]
  - Peripheral vascular disorder [Unknown]
  - Limb injury [Unknown]
  - Spinal deformity [Unknown]
  - Balance disorder [Not Recovered/Not Resolved]
  - Pain in extremity [Unknown]
  - Pain in extremity [Unknown]
  - Back pain [Not Recovered/Not Resolved]
  - Pain in extremity [Recovered/Resolved]
  - Treatment failure [Not Recovered/Not Resolved]
  - Oedema peripheral [Unknown]
  - Pain in extremity [Unknown]
  - Abdominal pain upper [Unknown]
  - Nausea [Recovered/Resolved]
  - Diarrhoea [Not Recovered/Not Resolved]
  - Gastritis [Unknown]
  - Gastrooesophageal reflux disease [Unknown]
